FAERS Safety Report 7347270-8 (Version None)
Quarter: 2011Q1

REPORT INFORMATION
  Report Type: 
  Country: None (occurrence: None)
  Receive Date: 20110311
  Receipt Date: 20110307
  Transmission Date: 20110831
  Serious: No
  Sender: FDA-Public Use
  Company Number: US-PFIZER INC-2011017507

PATIENT
  Sex: Male
  Weight: 90.703 kg

DRUGS (2)
  1. LESCOL XL [Concomitant]
     Indication: BLOOD CHOLESTEROL INCREASED
     Dosage: 80 MG, 1X/DAY
     Route: 048
  2. XANAX [Suspect]
     Indication: ANXIETY
     Dosage: 0.5 MG, 2X/DAY
     Route: 048

REACTIONS (4)
  - FEELING ABNORMAL [None]
  - HEAD DISCOMFORT [None]
  - WRONG TECHNIQUE IN DRUG USAGE PROCESS [None]
  - HEADACHE [None]
